FAERS Safety Report 7237485-1 (Version None)
Quarter: 2011Q1

REPORT INFORMATION
  Report Type: 
  Country: None (occurrence: None)
  Receive Date: 20110121
  Receipt Date: 20110111
  Transmission Date: 20110831
  Serious: Yes (Hospitalization)
  Sender: FDA-Public Use
  Company Number: JP-JNJFOC-20101204272

PATIENT
  Sex: Female
  Weight: 61 kg

DRUGS (13)
  1. SODIUM HYALURONATE [Concomitant]
     Route: 031
  2. FOLIC ACID [Concomitant]
     Indication: FOLATE DEFICIENCY
     Route: 048
  3. KARY UNI [Concomitant]
     Indication: CATARACT
     Route: 031
  4. ACETANOL [Concomitant]
     Indication: HYPERTENSION
     Route: 048
  5. GOLIMUMAB [Suspect]
     Indication: RHEUMATOID ARTHRITIS
     Route: 058
  6. SODIUM ALGINATE [Concomitant]
     Indication: GASTRITIS PROPHYLAXIS
     Route: 048
  7. PLACEBO [Suspect]
     Indication: RHEUMATOID ARTHRITIS
     Route: 058
  8. METHOTREXATE [Concomitant]
     Indication: RHEUMATOID ARTHRITIS
     Route: 048
  9. LOXONIN [Concomitant]
     Indication: RHEUMATOID ARTHRITIS
     Route: 003
  10. LORFENAMIN [Concomitant]
     Indication: RHEUMATOID ARTHRITIS
     Route: 048
  11. PREDONINE [Concomitant]
     Indication: RHEUMATOID ARTHRITIS
     Route: 003
  12. TAKEPRON [Concomitant]
     Indication: GASTRITIS PROPHYLAXIS
     Route: 003
  13. AZUCURENIN S [Concomitant]
     Indication: HYPERTENSION
     Route: 048

REACTIONS (4)
  - ALANINE AMINOTRANSFERASE INCREASED [None]
  - GASTROENTERITIS [None]
  - BLOOD ALKALINE PHOSPHATASE INCREASED [None]
  - ASPARTATE AMINOTRANSFERASE INCREASED [None]
